FAERS Safety Report 21472105 (Version 3)
Quarter: 2022Q4

REPORT INFORMATION
  Report Type: Spontaneous
  Country: US (occurrence: US)
  Receive Date: 20221018
  Receipt Date: 20221027
  Transmission Date: 20230113
  Serious: Yes (Life-Threatening, Other)
  Sender: FDA-Public Use
  Company Number: US-PFIZER INC-PV202200078326

PATIENT
  Age: 77 Year
  Sex: Female

DRUGS (2)
  1. METOPROLOL TARTRATE [Suspect]
     Active Substance: METOPROLOL TARTRATE
     Dosage: UNK
  2. VERAPAMIL HCL [Suspect]
     Active Substance: VERAPAMIL HYDROCHLORIDE
     Dosage: UNK

REACTIONS (2)
  - BRASH syndrome [Unknown]
  - Urine output decreased [Unknown]
